FAERS Safety Report 7318068-1 (Version None)
Quarter: 2011Q1

REPORT INFORMATION
  Report Type: 
  Country: None (occurrence: None)
  Receive Date: 20110228
  Receipt Date: 20110216
  Transmission Date: 20110831
  Serious: Yes (Hospitalization)
  Sender: FDA-Public Use
  Company Number: US-BIOGENIDEC-2011BI006091

PATIENT
  Age: 46 Year
  Sex: Female

DRUGS (2)
  1. TYSABRI [Suspect]
     Route: 042
     Dates: start: 20100901
  2. TYSABRI [Suspect]
     Indication: MULTIPLE SCLEROSIS
     Route: 042
     Dates: start: 20080415

REACTIONS (11)
  - ABASIA [None]
  - MIGRAINE [None]
  - DISTURBANCE IN ATTENTION [None]
  - DYSARTHRIA [None]
  - DEHYDRATION [None]
  - OPTIC NEURITIS [None]
  - TREMOR [None]
  - INTENTION TREMOR [None]
  - MEMORY IMPAIRMENT [None]
  - INSOMNIA [None]
  - STRESS [None]
